FAERS Safety Report 6053966-0 (Version None)
Quarter: 2009Q1

REPORT INFORMATION
  Report Type: 
  Country: None (occurrence: None)
  Receive Date: 20090127
  Receipt Date: 20090119
  Transmission Date: 20090719
  Serious: Yes (Death, Hospitalization)
  Sender: FDA-Public Use
  Company Number: CG-MERCK-0901USA03039

PATIENT
  Age: 14 Year
  Sex: Female

DRUGS (1)
  1. STROMECTOL [Suspect]
     Indication: ONCHOCERCIASIS
     Route: 048
     Dates: start: 20081030, end: 20081030

REACTIONS (10)
  - AGITATION [None]
  - ANAEMIA [None]
  - BRADYCARDIA [None]
  - CARDIO-RESPIRATORY ARREST [None]
  - COMA [None]
  - EPISTAXIS [None]
  - HAEMATEMESIS [None]
  - HYPOTENSION [None]
  - LOGORRHOEA [None]
  - MYALGIA [None]
